FAERS Safety Report 17937460 (Version 1)
Quarter: 2020Q2

REPORT INFORMATION
  Report Type: Spontaneous
  Country: None (occurrence: US)
  Receive Date: 20200624
  Receipt Date: 20200624
  Transmission Date: 20200714
  Serious: No
  Sender: FDA-Public Use
  Company Number: US-AKRON, INC.-2086617

PATIENT
  Age: 75 Year
  Sex: Female

DRUGS (1)
  1. KETOTIFEN FUMARATE. [Suspect]
     Active Substance: KETOTIFEN FUMARATE
     Route: 047

REACTIONS (2)
  - Drug ineffective [Recovering/Resolving]
  - Eye pruritus [Not Recovered/Not Resolved]
